FAERS Safety Report 8816020 (Version 1)
Quarter: 2012Q4

REPORT INFORMATION
  Report Type: 
  Country: FR (occurrence: FR)
  Receive Date: 20120929
  Receipt Date: 20120929
  Transmission Date: 20130627
  Serious: Yes (Other)
  Sender: FDA-Public Use
  Company Number: FR-B.I. PHARMACEUTICALS,INC./RIDGEFIELD-2012-EU-04757BY

PATIENT

DRUGS (1)
  1. TELMISARTAN [Suspect]
     Route: 065

REACTIONS (1)
  - Renal failure [Unknown]
